FAERS Safety Report 5080845-8 (Version None)
Quarter: 2006Q3

REPORT INFORMATION
  Report Type: 
  Country: None (occurrence: None)
  Receive Date: 20060811
  Receipt Date: 20060731
  Transmission Date: 20061208
  Serious: Yes (Hospitalization)
  Sender: FDA-Public Use
  Company Number: 2006076974

PATIENT
  Age: 57 Year
  Sex: Female
  Weight: 96.6162 kg

DRUGS (5)
  1. EXEMESTANE [Suspect]
     Indication: BREAST CANCER
     Dosage: 25 MG (25 MG, 1 IN 1 D), ORAL
     Route: 048
     Dates: start: 20020409
  2. ZETIA [Concomitant]
  3. LISINOPRIL [Concomitant]
  4. AVANDIA [Concomitant]
  5. METFORMIN [Concomitant]

REACTIONS (1)
  - DEEP VEIN THROMBOSIS [None]
